FAERS Safety Report 7428869-7 (Version None)
Quarter: 2011Q2

REPORT INFORMATION
  Report Type: 
  Country: None (occurrence: None)
  Receive Date: 20110415
  Receipt Date: 20110415
  Transmission Date: 20111010
  Serious: Yes (Hospitalization)
  Sender: FDA-Public Use
  Company Number: None

PATIENT
  Age: 84 Year
  Sex: Female
  Weight: 72.5755 kg

DRUGS (1)
  1. RISPERIDONE [Suspect]
     Indication: DEMENTIA
     Dates: start: 20110125, end: 20110406

REACTIONS (3)
  - NEUROLEPTIC MALIGNANT SYNDROME [None]
  - FALL [None]
  - RHABDOMYOLYSIS [None]
